FAERS Safety Report 6251810-X (Version None)
Quarter: 2009Q2

REPORT INFORMATION
  Report Type: 
  Country: None (occurrence: None)
  Receive Date: 20090629
  Receipt Date: 20090616
  Transmission Date: 20091009
  Serious: Yes (Hospitalization, Other)
  Sender: FDA-Public Use
  Company Number: 2009AL004062

PATIENT
  Sex: Female

DRUGS (9)
  1. METFORMIN HCL [Suspect]
     Indication: DIABETES MELLITUS
     Dosage: PO
     Route: 048
  2. FEVERALL [Suspect]
  3. GABAPENTIN [Suspect]
  4. RITUXIMAB [Concomitant]
  5. CALCICHEW D3 [Concomitant]
  6. SOLIFENACIN [Concomitant]
  7. ALENDRONIC ACID [Concomitant]
  8. OMEPRAZOLE [Concomitant]
  9. AMITRIPTYLINE HCL [Concomitant]

REACTIONS (4)
  - ABDOMINAL SEPSIS [None]
  - LACTIC ACIDOSIS [None]
  - LETHARGY [None]
  - PNEUMONIA [None]
